FAERS Safety Report 11713410 (Version 3)
Quarter: 2016Q2

REPORT INFORMATION
  Report Type: Report from Study
  Country: US (occurrence: US)
  Receive Date: 20151109
  Receipt Date: 20160526
  Transmission Date: 20160815
  Serious: No
  Sender: FDA-Public Use
  Company Number: US-AMGEN-USASL2015114554

PATIENT
  Age: 59 Year
  Sex: Female

DRUGS (2)
  1. ENBREL [Suspect]
     Active Substance: ETANERCEPT
     Indication: PSORIATIC ARTHROPATHY
     Dosage: UNK
     Route: 065
     Dates: start: 1998
  2. ENBREL [Suspect]
     Active Substance: ETANERCEPT
     Dosage: 100 MG, 2 TIMES/WK
     Route: 065

REACTIONS (10)
  - Device issue [Unknown]
  - Memory impairment [Unknown]
  - Arthritis [Not Recovered/Not Resolved]
  - Intentional product misuse [Unknown]
  - Hypersensitivity [Unknown]
  - Chest discomfort [Unknown]
  - Speech disorder [Unknown]
  - Fibromyalgia [Not Recovered/Not Resolved]
  - Psoriasis [Unknown]
  - Cough [Unknown]
